FAERS Safety Report 8499297-0 (Version None)
Quarter: 2012Q3

REPORT INFORMATION
  Report Type: 
  Country: None (occurrence: None)
  Receive Date: 20120710
  Receipt Date: 20120706
  Transmission Date: 20120928
  Serious: Yes (Hospitalization)
  Sender: FDA-Public Use
  Company Number: PHHY2012AR041609

PATIENT
  Sex: Female

DRUGS (2)
  1. DIOVAN [Suspect]
     Dosage: 160 MG ONE TABLET DAILY
  2. DIOVAN [Suspect]
     Indication: HYPERTENSION
     Dosage: 80 MG, ONE TABLET DAILY
     Dates: end: 20120301

REACTIONS (4)
  - BLOOD POTASSIUM DECREASED [None]
  - HYPERTENSION [None]
  - DRUG INEFFECTIVE [None]
  - SYNCOPE [None]
